FAERS Safety Report 6043471-X (Version None)
Quarter: 2009Q1

REPORT INFORMATION
  Report Type: 
  Country: None (occurrence: None)
  Receive Date: 20090115
  Receipt Date: 20081223
  Transmission Date: 20090719
  Serious: Yes (Death, Hospitalization)
  Sender: FDA-Public Use
  Company Number: 110981

PATIENT
  Age: 35 Year
  Sex: Male

DRUGS (4)
  1. PSEUDOEPHEDRINE HCL [Suspect]
     Dosage: ORAL
     Route: 048
  2. COCAINE [Concomitant]
  3. MARIJUANA [Concomitant]
  4. ETHANOL [Concomitant]

REACTIONS (3)
  - CARDIAC ARREST [None]
  - OVERDOSE [None]
  - RESPIRATORY ARREST [None]
